FAERS Safety Report 18111474 (Version 1)
Quarter: 2020Q3

REPORT INFORMATION
  Report Type: Spontaneous
  Country: ES (occurrence: ES)
  Receive Date: 20200805
  Receipt Date: 20200805
  Transmission Date: 20201103
  Serious: Yes (Other)
  Sender: FDA-Public Use
  Company Number: ES-AUROBINDO-AUR-APL-2020-037497

PATIENT
  Age: 7 Decade
  Sex: Male

DRUGS (1)
  1. OLMESARTAN [Suspect]
     Active Substance: OLMESARTAN
     Indication: HYPERTENSION
     Dosage: UNK
     Route: 048
     Dates: start: 201710, end: 2018

REACTIONS (2)
  - Condition aggravated [Recovered/Resolved]
  - Autoimmune hepatitis [Recovered/Resolved]

NARRATIVE: CASE EVENT DATE: 201804
